FAERS Safety Report 17551962 (Version 4)
Quarter: 2021Q4

REPORT INFORMATION
  Report Type: Spontaneous
  Country: US (occurrence: US)
  Receive Date: 20200317
  Receipt Date: 20211213
  Transmission Date: 20220303
  Serious: Yes (Hospitalization, Other)
  Sender: FDA-Public Use
  Company Number: US-TAKEDA-2020TUS014553

PATIENT
  Sex: Female

DRUGS (2)
  1. NINLARO [Suspect]
     Active Substance: IXAZOMIB CITRATE
     Indication: Plasma cell myeloma
     Dosage: 2.3 MILLIGRAM
     Route: 048
     Dates: start: 20200218
  2. NINLARO [Suspect]
     Active Substance: IXAZOMIB CITRATE
     Indication: Pulmonary embolism
     Dosage: 3 MILLIGRAM
     Route: 048
     Dates: start: 20200828

REACTIONS (4)
  - Gastrointestinal haemorrhage [Unknown]
  - Thyroid disorder [Unknown]
  - Gastric disorder [Unknown]
  - Off label use [Unknown]

NARRATIVE: CASE EVENT DATE: 20200101
